FAERS Safety Report 9349946 (Version 1)
Quarter: 2013Q2

REPORT INFORMATION
  Report Type: Spontaneous
  Country: US (occurrence: US)
  Receive Date: 20130614
  Receipt Date: 20130614
  Transmission Date: 20140414
  Serious: No
  Sender: FDA-Public Use
  Company Number: US-009507513-1306USA002200

PATIENT
  Sex: 0

DRUGS (2)
  1. NASONEX [Suspect]
     Indication: RHINITIS ALLERGIC
     Route: 045
  2. CLARITIN [Concomitant]
     Dosage: UNK

REACTIONS (2)
  - Ear pain [Not Recovered/Not Resolved]
  - Rhinalgia [Not Recovered/Not Resolved]
